FAERS Safety Report 8100258-1 (Version None)
Quarter: 2012Q1

REPORT INFORMATION
  Report Type: 
  Country: None (occurrence: None)
  Receive Date: 20120131
  Receipt Date: 20120120
  Transmission Date: 20120608
  Serious: Yes (Other)
  Sender: FDA-Public Use
  Company Number: JP-BRISTOL-MYERS SQUIBB COMPANY-16364838

PATIENT
  Age: 65 Year
  Sex: Male

DRUGS (4)
  1. CADUET [Concomitant]
     Route: 048
  2. METFORMIN HCL [Suspect]
     Indication: DIABETES MELLITUS
     Dosage: 500MG MAY11-UNK;750MG UNK-JAN2012
     Route: 048
     Dates: start: 20110501, end: 20120101
  3. AMARYL [Concomitant]
     Route: 048
  4. METFORMIN HCL [Concomitant]
     Dates: start: 20110401, end: 20110501

REACTIONS (1)
  - LIVER DISORDER [None]
